FAERS Safety Report 8922249 (Version 2)
Quarter: 2012Q4

REPORT INFORMATION
  Report Type: Report from Study
  Country: CA (occurrence: CA)
  Receive Date: 20121123
  Receipt Date: 20121231
  Transmission Date: 20130627
  Serious: Yes (Other)
  Sender: FDA-Public Use
  Company Number: CA-JNJFOC-20121108966

PATIENT
  Sex: Male
  Weight: 86.2 kg

DRUGS (2)
  1. REMICADE [Suspect]
     Indication: COLITIS ULCERATIVE
     Dosage: Last infusion prior to event was administered on 27-SEP (year unspecified)
     Route: 042
     Dates: start: 20090818
  2. PENICILLIN [Suspect]
     Indication: SKIN INFECTION
     Dosage: duration of treatment: 4 days
     Route: 065

REACTIONS (6)
  - Haemorrhage [Recovering/Resolving]
  - Colitis ulcerative [Recovering/Resolving]
  - Ocular hyperaemia [Recovering/Resolving]
  - Joint swelling [Recovering/Resolving]
  - Throat tightness [Recovering/Resolving]
  - Skin infection [Recovering/Resolving]
